FAERS Safety Report 8332756-X (Version None)
Quarter: 2012Q2

REPORT INFORMATION
  Report Type: 
  Country: None (occurrence: None)
  Receive Date: 20120503
  Receipt Date: 20120425
  Transmission Date: 20120825
  Serious: Yes (Hospitalization, Other)
  Sender: FDA-Public Use
  Company Number: US-US-EMD SERONO, INC.-231256J10USA

PATIENT
  Sex: Female
  Weight: 109 kg

DRUGS (2)
  1. REBIF [Suspect]
     Indication: MULTIPLE SCLEROSIS
     Route: 058
     Dates: start: 20080804
  2. GABAPENTIN [Concomitant]
     Indication: MULTIPLE SCLEROSIS

REACTIONS (7)
  - DIZZINESS [None]
  - ASTHENIA [None]
  - VISION BLURRED [None]
  - BLOOD PRESSURE INCREASED [None]
  - TYPE 1 DIABETES MELLITUS [None]
  - HEART RATE INCREASED [None]
  - CYSTITIS [None]
